FAERS Safety Report 4659033-2 (Version None)
Quarter: 2005Q2

REPORT INFORMATION
  Report Type: 
  Country: None (occurrence: None)
  Receive Date: 20050509
  Receipt Date: 20050425
  Transmission Date: 20051028
  Serious: Yes (Hospitalization)
  Sender: FDA-Public Use
  Company Number: 04P-087-0266730-00

PATIENT
  Age: 32 Year
  Sex: Male

DRUGS (5)
  1. KALETRA [Suspect]
     Indication: HIV INFECTION
     Dosage: 6 DOSAGE FORMS, 1 IN 1 D, PER ORAL
     Route: 048
     Dates: start: 20020722, end: 20040119
  2. DIDANOSINE [Suspect]
     Indication: HIV INFECTION
     Dosage: 200 MG, 2 IN 1 D, PER ORAL
     Route: 048
     Dates: start: 20020722, end: 20040526
  3. TENOFOVIR [Suspect]
     Indication: HIV INFECTION
     Dosage: PER ORAL
     Route: 048
     Dates: start: 20020722, end: 20040526
  4. ATAZANAVIR SULFATE [Suspect]
     Indication: HIV INFECTION
     Dosage: 300 MG, 1 IN 1 D, PER ORAL
     Route: 048
     Dates: start: 20040119, end: 20040526
  5. RABEPRAZOLE SODIUM [Suspect]
     Indication: GASTRIC ULCER
     Dosage: 20 MG, 1 IN 1 D, PER ORAL
     Route: 048
     Dates: start: 20040105, end: 20040205

REACTIONS (8)
  - AMINOACIDURIA [None]
  - FANCONI SYNDROME [None]
  - FATIGUE [None]
  - GLYCOSURIA [None]
  - HYPOURICAEMIA [None]
  - METABOLIC ACIDOSIS [None]
  - OSTEOMALACIA [None]
  - PROTEINURIA [None]
